FAERS Safety Report 6660656-X (Version None)
Quarter: 2010Q1

REPORT INFORMATION
  Report Type: 
  Country: None (occurrence: None)
  Receive Date: 20100331
  Receipt Date: 20100322
  Transmission Date: 20100710
  Serious: Yes (Hospitalization)
  Sender: FDA-Public Use
  Company Number: GB-NOVOPROD-306111

PATIENT
  Age: 17 Year
  Sex: Male

DRUGS (2)
  1. NOVORAPID [Suspect]
     Indication: TYPE 1 DIABETES MELLITUS
     Dosage: UNK
  2. LANTUS [Suspect]
     Indication: TYPE 1 DIABETES MELLITUS

REACTIONS (1)
  - CEREBRAL VENOUS THROMBOSIS [None]
